FAERS Safety Report 9632433 (Version 1)
Quarter: 2013Q4

REPORT INFORMATION
  Report Type: Spontaneous
  Country: US (occurrence: None)
  Receive Date: 20131018
  Receipt Date: 20131018
  Transmission Date: 20140711
  Serious: Yes (Disabling)
  Sender: FDA-Public Use
  Company Number: None

PATIENT
  Age: 2 Year
  Sex: Female
  Weight: 13.15 kg

DRUGS (1)
  1. MIRALAX [Suspect]
     Indication: CONSTIPATION
     Dosage: 1/2 CAPFUL
     Route: 048
     Dates: start: 20130909, end: 20131008

REACTIONS (7)
  - Excessive eye blinking [None]
  - Tic [None]
  - Obsessive-compulsive disorder [None]
  - Abnormal behaviour [None]
  - Petit mal epilepsy [None]
  - Hyperacusis [None]
  - Disturbance in attention [None]
